FAERS Safety Report 19744891 (Version 1)
Quarter: 2021Q3

REPORT INFORMATION
  Report Type: Spontaneous
  Country: PL (occurrence: PL)
  Receive Date: 20210825
  Receipt Date: 20210825
  Transmission Date: 20211014
  Serious: Yes (Hospitalization, Other)
  Sender: FDA-Public Use
  Company Number: PL-MYLANLABS-2021M1055771

PATIENT
  Age: 54 Year
  Sex: Female

DRUGS (6)
  1. ATORVASTATIN [Suspect]
     Active Substance: ATORVASTATIN
     Indication: DYSLIPIDAEMIA
     Dosage: 40 MILLIGRAM, QD
  2. RISPERIDONE. [Interacting]
     Active Substance: RISPERIDONE
     Indication: SCHIZOPHRENIA
     Dosage: 4 MILLIGRAM, QD
  3. AMLODIPINE [Concomitant]
     Active Substance: AMLODIPINE BESYLATE
     Indication: HYPERTENSION
     Dosage: 10 MILLIGRAM, QD
  4. GINKGO BILOBA EXTRACT [Interacting]
     Active Substance: GINKGO
     Indication: SPINAL PAIN
     Dosage: 240 MILLIGRAM, QD
  5. CELECOXIB. [Interacting]
     Active Substance: CELECOXIB
     Indication: SPINAL PAIN
     Dosage: 200 MILLIGRAM
  6. NEBIVOLOL. [Concomitant]
     Active Substance: NEBIVOLOL
     Indication: HYPERTENSION
     Dosage: 5 MILLIGRAM, QD

REACTIONS (2)
  - Angioedema [Recovered/Resolved]
  - Drug interaction [Recovered/Resolved]
